FAERS Safety Report 10066694 (Version 1)
Quarter: 2014Q2

REPORT INFORMATION
  Report Type: Spontaneous
  Country: US (occurrence: None)
  Receive Date: 20140401
  Receipt Date: 20140401
  Transmission Date: 20141212
  Serious: Yes (Hospitalization)
  Sender: FDA-Public Use
  Company Number: PHEH2013US006632

PATIENT
  Age: 91 Year
  Sex: Female
  Weight: 49.9 kg

DRUGS (2)
  1. EXELON PATCH (RIVASTIGMINE) TRANS-THERAPEUTIC-SYSTEM [Suspect]
     Indication: DEMENTIA
     Dosage: 4.6 MG, DAILY (FOUR CONSECUTIVE DAYS), TRANDERMAL
     Route: 062
  2. CLOPERIDONE (CLOPERIDONE) [Concomitant]

REACTIONS (3)
  - Hip fracture [None]
  - Fall [None]
  - Dizziness [None]
